FAERS Safety Report 4384980-9 (Version None)
Quarter: 2004Q2

REPORT INFORMATION
  Report Type: 
  Country: None (occurrence: None)
  Receive Date: 20040623
  Receipt Date: 20040623
  Transmission Date: 20050107
  Serious: Yes (Other)
  Sender: FDA-Public Use
  Company Number: None

PATIENT
  Age: 53 Year
  Sex: Female
  Weight: 86.1834 kg

DRUGS (2)
  1. FLUOXETINE 40 MG BID PARR [Suspect]
     Indication: MAJOR DEPRESSION
     Dosage: 40MG PO BID
     Route: 048
     Dates: start: 20050325
  2. CLONAZEPAM 0.5MG TID PRN PURPACK [Suspect]
     Indication: PANIC DISORDER WITH AGORAPHOBIA
     Dosage: 0.5MG TID PO PRN
     Route: 048
     Dates: start: 20020924

REACTIONS (6)
  - ANXIETY [None]
  - DEPRESSION [None]
  - DRUG INEFFECTIVE [None]
  - INSOMNIA [None]
  - MOOD ALTERED [None]
  - PHARMACEUTICAL PRODUCT COMPLAINT [None]
